FAERS Safety Report 9623133 (Version 2)
Quarter: 2013Q4

REPORT INFORMATION
  Report Type: Spontaneous
  Country: IT (occurrence: None)
  Receive Date: 20131010
  Receipt Date: 20131126
  Transmission Date: 20140711
  Serious: No
  Sender: FDA-Public Use
  Company Number: IT-2013-3266

PATIENT
  Age: 50 Year
  Sex: Female

DRUGS (2)
  1. NAVELBINE [Suspect]
     Indication: BREAST CANCER
     Route: 042
     Dates: start: 20130727
  2. XELODA [Suspect]
     Indication: BREAST CANCER
     Dosage: 2500 MG/SQ. M.  QD., 1 DAY.
     Route: 048
     Dates: start: 20130727, end: 20130730

REACTIONS (4)
  - Hypocalcaemia [None]
  - Hypokalaemia [None]
  - Tongue oedema [None]
  - Paraesthesia oral [None]
